FAERS Safety Report 12920489 (Version 2)
Quarter: 2017Q1

REPORT INFORMATION
  Report Type: Spontaneous
  Country: US (occurrence: US)
  Receive Date: 20161107
  Receipt Date: 20170112
  Transmission Date: 20170428
  Serious: Yes (Life-Threatening, Hospitalization)
  Sender: FDA-Public Use
  Company Number: US-BAYER-2016-211490

PATIENT
  Age: 25 Year
  Sex: Female

DRUGS (1)
  1. MIRENA [Suspect]
     Active Substance: LEVONORGESTREL
     Indication: CONTRACEPTION
     Dosage: 20 MCG/24HR, CONT
     Route: 015
     Dates: start: 20160613, end: 20161101

REACTIONS (9)
  - Haemorrhagic ovarian cyst [None]
  - Ovarian cyst ruptured [None]
  - Device issue [None]
  - Abdominal pain lower [None]
  - Ovarian enlargement [None]
  - Ovarian cyst torsion [None]
  - Procedural pain [None]
  - Pelvic pain [None]
  - Adnexa uteri pain [None]

NARRATIVE: CASE EVENT DATE: 2016
